FAERS Safety Report 4705473-2 (Version None)
Quarter: 2005Q2

REPORT INFORMATION
  Report Type: 
  Country: None (occurrence: None)
  Receive Date: 20050630
  Receipt Date: 20050630
  Transmission Date: 20051028
  Serious: Yes (Hospitalization)
  Sender: FDA-Public Use
  Company Number: None

PATIENT
  Age: 82 Year
  Sex: Male
  Weight: 62.6 kg

DRUGS (12)
  1. WARFARIN [Suspect]
     Dosage: 5MG QD BY MOUTH
     Route: 048
     Dates: start: 20040406, end: 20040921
  2. ATENOLOL [Concomitant]
  3. CITALOPRAM HYDROBROMIDE [Concomitant]
  4. LISINOPRIL [Concomitant]
  5. SIMVASTATIN [Concomitant]
  6. ACETAMINOPHEN [Concomitant]
  7. FINASTERIDE [Concomitant]
  8. NITROGLYCERIN [Concomitant]
  9. TAMSULOSIN HCL (FLOMAX) [Concomitant]
  10. DOCUSATE SODIUM (COLACE) [Concomitant]
  11. METOPROLOL TARTRATE [Concomitant]
  12. FUROSEMIDE [Concomitant]

REACTIONS (1)
  - INTERNATIONAL NORMALISED RATIO INCREASED [None]
